FAERS Safety Report 15959541 (Version 1)
Quarter: 2019Q1

REPORT INFORMATION
  Report Type: Spontaneous
  Country: FR (occurrence: FR)
  Receive Date: 20190214
  Receipt Date: 20190214
  Transmission Date: 20190417
  Serious: Yes (Other)
  Sender: FDA-Public Use
  Company Number: FR-ACCORD-107007

PATIENT
  Age: 36 Year
  Sex: Male
  Weight: 67 kg

DRUGS (5)
  1. LEPTICUR [Concomitant]
     Active Substance: TROPATEPINE HYDROCHLORIDE
  2. MOVICOL [Concomitant]
     Active Substance: POLYETHYLENE GLYCOL 3350\POTASSIUM CHLORIDE\SODIUM BICARBONATE\SODIUM CHLORIDE
  3. CLOZAPINE. [Suspect]
     Active Substance: CLOZAPINE
     Indication: SCHIZOPHRENIA
     Route: 048
     Dates: start: 20160803, end: 20180313
  4. THERALENE [Concomitant]
     Active Substance: TRIMEPRAZINE
  5. VALIUM [Concomitant]
     Active Substance: DIAZEPAM

REACTIONS (3)
  - Encephalopathy [Recovered/Resolved]
  - Myoclonus [Recovered/Resolved]
  - Seizure [Recovered/Resolved]

NARRATIVE: CASE EVENT DATE: 20160925
